FAERS Safety Report 7602725-3 (Version None)
Quarter: 2011Q3

REPORT INFORMATION
  Report Type: 
  Country: None (occurrence: None)
  Receive Date: 20110701
  Receipt Date: 20090602
  Transmission Date: 20111222
  Serious: Yes (Disabling)
  Sender: FDA-Public Use
  Company Number: SIM_00045_2011

PATIENT
  Sex: Female

DRUGS (1)
  1. EARACHE RELIEF (HOMEOPATHIC) [Suspect]
     Dosage: (DF AURICULAR (OTIC))
     Route: 001
     Dates: start: 20090501

REACTIONS (1)
  - DEAFNESS [None]
